FAERS Safety Report 7092496-4 (Version None)
Quarter: 2010Q4

REPORT INFORMATION
  Report Type: 
  Country: None (occurrence: None)
  Receive Date: 20101108
  Receipt Date: 20101108
  Transmission Date: 20110411
  Serious: Yes (Hospitalization)
  Sender: FDA-Public Use
  Company Number: None

PATIENT
  Age: 80 Year
  Sex: Female
  Weight: 79.3795 kg

DRUGS (1)
  1. MULTAQ [Suspect]
     Indication: CARDIOVERSION
     Dosage: 1 TABLET 2X A DAY
     Dates: start: 20100508, end: 20100512

REACTIONS (2)
  - AMNESIA [None]
  - LOSS OF CONSCIOUSNESS [None]
